FAERS Safety Report 8184264 (Version 2)
Quarter: 2012Q4

REPORT INFORMATION
  Report Type: 
  Country: US (occurrence: None)
  Receive Date: 20111005
  Receipt Date: 20120821
  Transmission Date: 20130627
  Serious: Yes (Hospitalization)
  Sender: FDA-Public Use
  Company Number: AUR-APL-2011-05260

PATIENT
  Age: 41 Year
  Sex: Female

DRUGS (1)
  1. LAMOTRIGINE [Suspect]
     Indication: BIPOLAR II DISORDER
     Dosage: (25 MG, 1 D), ORAL
     Route: 048

REACTIONS (4)
  - RESPIRATORY ALKALOSIS [None]
  - ACUTE RESPIRATORY DISTRESS SYNDROME [None]
  - Drug reaction with eosinophilia and systemic symptoms [None]
  - MULTI-ORGAN FAILURE [None]
